FAERS Safety Report 22629475 (Version 1)
Quarter: 2023Q2

REPORT INFORMATION
  Report Type: Spontaneous
  Country: CN (occurrence: CN)
  Receive Date: 20230622
  Receipt Date: 20230622
  Transmission Date: 20230722
  Serious: Yes (Death, Other)
  Sender: FDA-Public Use
  Company Number: CN-PFIZER INC-PV202300108023

PATIENT
  Age: 17 Year
  Sex: Male

DRUGS (9)
  1. METHYLPREDNISOLONE SODIUM SUCCINATE [Suspect]
     Active Substance: METHYLPREDNISOLONE SODIUM SUCCINATE
     Indication: Posterior reversible encephalopathy syndrome
     Dosage: 250 MG, 2X/DAY (DOSE HALVED EVERY 3 DAYS UNTIL DISCONTINUATION)
     Route: 041
  2. PREDNISONE [Suspect]
     Active Substance: PREDNISONE
     Dosage: 1.0 MG/KG
  3. CYCLOSPORINE [Suspect]
     Active Substance: CYCLOSPORINE
     Dosage: 70 MG, DAILY
     Route: 048
  4. CYCLOSPORINE [Suspect]
     Active Substance: CYCLOSPORINE
     Dosage: 170 MG, DAILY
     Route: 041
  5. MYCOPHENOLATE MOFETIL [Suspect]
     Active Substance: MYCOPHENOLATE MOFETIL
     Dosage: 30 MG/KG
     Route: 048
  6. TACROLIMUS [Suspect]
     Active Substance: TACROLIMUS
     Indication: Graft versus host disease
     Route: 041
  7. BASILIXIMAB [Suspect]
     Active Substance: BASILIXIMAB
  8. LEVETIRACETAM [Concomitant]
     Active Substance: LEVETIRACETAM
     Indication: Posterior reversible encephalopathy syndrome
     Route: 048
  9. MICAFUNGIN [Concomitant]
     Active Substance: MICAFUNGIN SODIUM
     Indication: Fungal infection

REACTIONS (4)
  - Subarachnoid haemorrhage [Fatal]
  - Intracranial aneurysm [Unknown]
  - Fungal infection [Unknown]
  - Off label use [Unknown]
